FAERS Safety Report 5777154-8 (Version None)
Quarter: 2008Q2

REPORT INFORMATION
  Report Type: 
  Country: None (occurrence: None)
  Receive Date: 20080617
  Receipt Date: 20080617
  Transmission Date: 20081010
  Serious: No
  Sender: FDA-Public Use
  Company Number: None

PATIENT
  Age: 30 Year
  Sex: Male
  Weight: 83.9154 kg

DRUGS (2)
  1. BUDEPRION XL         150MG          TEVA [Suspect]
     Indication: ATTENTION DEFICIT/HYPERACTIVITY DISORDER
     Dosage: 1 DAILY PO
     Route: 048
     Dates: start: 20080603, end: 20080614
  2. BUDEPRION XL         150MG          TEVA [Suspect]
     Indication: DEPRESSION
     Dosage: 1 DAILY PO
     Route: 048
     Dates: start: 20080603, end: 20080614

REACTIONS (5)
  - DEPRESSION [None]
  - DRY MOUTH [None]
  - IRRITABILITY [None]
  - PHARMACEUTICAL PRODUCT COMPLAINT [None]
  - RESTLESSNESS [None]
